FAERS Safety Report 8374058-1 (Version None)
Quarter: 2012Q2

REPORT INFORMATION
  Report Type: 
  Country: None (occurrence: None)
  Receive Date: 20120521
  Receipt Date: 20120511
  Transmission Date: 20120825
  Serious: Yes (Hospitalization, Other)
  Sender: FDA-Public Use
  Company Number: JP-CELGENEUS-087-50794-12052035

PATIENT
  Sex: Female
  Weight: 46 kg

DRUGS (14)
  1. LAXOBERON [Concomitant]
     Route: 065
     Dates: start: 20111025
  2. MAGNESIUM OXIDE [Concomitant]
     Route: 065
     Dates: start: 20111025
  3. COBALUM [Concomitant]
     Route: 065
     Dates: start: 20111101
  4. GRANISETRON [Concomitant]
     Route: 065
     Dates: start: 20111124, end: 20111202
  5. BETAMETHASONE [Concomitant]
     Route: 065
     Dates: start: 20111103
  6. VIDAZA [Suspect]
     Dosage: 75 MILLIGRAM/SQ. METER
     Route: 041
     Dates: start: 20111124, end: 20111202
  7. CEFOZOPRAN HYDROCHLORIDE [Suspect]
     Route: 041
     Dates: start: 20111030, end: 20111108
  8. ACETAMINOPHEN [Concomitant]
     Route: 065
     Dates: start: 20111028
  9. RISEDRONATE SODIUM [Concomitant]
     Route: 065
     Dates: start: 20111030
  10. VIDAZA [Suspect]
     Dosage: 75 MILLIGRAM/SQ. METER
     Route: 058
     Dates: start: 20111024, end: 20111101
  11. ZOFRAN [Concomitant]
     Route: 065
     Dates: start: 20111024, end: 20111102
  12. LEVOFLOXACIN [Concomitant]
     Route: 065
     Dates: start: 20111113, end: 20111124
  13. PURSENNID [Concomitant]
     Route: 065
     Dates: start: 20111025, end: 20111030
  14. FLUOROMETHOLONE [Concomitant]
     Route: 065
     Dates: start: 20111101

REACTIONS (6)
  - FEBRILE NEUTROPENIA [None]
  - HAEMOGLOBIN DECREASED [None]
  - ECZEMA [None]
  - ENTEROCOLITIS [None]
  - RED BLOOD CELL COUNT DECREASED [None]
  - WHITE BLOOD CELL COUNT DECREASED [None]
